FAERS Safety Report 8215352-4 (Version None)
Quarter: 2012Q1

REPORT INFORMATION
  Report Type: 
  Country: None (occurrence: None)
  Receive Date: 20120316
  Receipt Date: 20120313
  Transmission Date: 20120608
  Serious: Yes (Hospitalization, Other)
  Sender: FDA-Public Use
  Company Number: PH-PFIZER INC-2012066810

PATIENT
  Age: 63 Year
  Sex: Female

DRUGS (3)
  1. LYRICA [Suspect]
     Dosage: 75 MG, 2X/DAY
  2. LYRICA [Suspect]
     Indication: BACK PAIN
     Dosage: 50 MG, 1X/DAY
  3. LYRICA [Suspect]
     Dosage: 50 MG, 2X/DAY

REACTIONS (2)
  - DEHYDRATION [None]
  - VOMITING [None]
